FAERS Safety Report 25503549 (Version 1)
Quarter: 2025Q3

REPORT INFORMATION
  Report Type: Spontaneous
  Country: EU (occurrence: EU)
  Receive Date: 20250702
  Receipt Date: 20250702
  Transmission Date: 20251020
  Serious: Yes (Hospitalization, Other)
  Sender: MYLAN
  Company Number: EU-MYLANLABS-2025M1054992

PATIENT
  Sex: Female

DRUGS (2)
  1. DOXORUBICIN [Suspect]
     Active Substance: DOXORUBICIN
     Indication: Synovial sarcoma metastatic
     Dosage: 50 MILLIGRAM/SQ. METER, ON DAY 1
  2. IFOSFAMIDE [Suspect]
     Active Substance: IFOSFAMIDE
     Indication: Synovial sarcoma metastatic
     Dosage: UNK UNK, Q3W, 2.5 G/M2 ON DAY 1 AND DAY 2

REACTIONS (11)
  - Premature baby [Unknown]
  - Foetal growth restriction [Not Recovered/Not Resolved]
  - Foetal heart rate disorder [Unknown]
  - Respiratory distress [Unknown]
  - Jaundice [Unknown]
  - Urinary tract infection [Unknown]
  - Hypertonia [Unknown]
  - Plagiocephaly [Unknown]
  - Stereotypy [Unknown]
  - Anaemia [Unknown]
  - Foetal exposure during pregnancy [Recovered/Resolved]
